FAERS Safety Report 15434083 (Version 1)
Quarter: 2018Q3

REPORT INFORMATION
  Report Type: Report from Study
  Country: US (occurrence: US)
  Receive Date: 20180927
  Receipt Date: 20180927
  Transmission Date: 20181010
  Serious: Yes (Hospitalization)
  Sender: FDA-Public Use
  Company Number: US-ROCHE-2189513

PATIENT
  Sex: Female

DRUGS (10)
  1. NUTROPIN AQ [Suspect]
     Active Substance: SOMATROPIN
     Indication: GROWTH HORMONE DEFICIENCY
     Route: 058
  2. DDAVP [Concomitant]
     Active Substance: DESMOPRESSIN ACETATE
     Dosage: 1/2 TABLET IN MORNING, 1 TABLET IN EVENING.
     Route: 048
  3. PREDNISONE. [Concomitant]
     Active Substance: PREDNISONE
     Route: 065
  4. PREDNISONE. [Concomitant]
     Active Substance: PREDNISONE
     Route: 048
  5. SERTRALINE [Concomitant]
     Active Substance: SERTRALINE HYDROCHLORIDE
     Route: 048
  6. SYNTHROID [Concomitant]
     Active Substance: LEVOTHYROXINE SODIUM
     Route: 048
  7. MELATONIN [Concomitant]
     Active Substance: MELATONIN
     Dosage: AT BEDTIME
     Route: 048
  8. PREDNISONE. [Concomitant]
     Active Substance: PREDNISONE
     Indication: ADRENAL INSUFFICIENCY
     Route: 065
  9. NUTROPIN AQ [Suspect]
     Active Substance: SOMATROPIN
     Indication: HYPOPITUITARISM
     Route: 058
  10. TRAZODONE [Concomitant]
     Active Substance: TRAZODONE HYDROCHLORIDE
     Route: 065

REACTIONS (4)
  - Dehydration [Unknown]
  - Tremor [Unknown]
  - Depression [Unknown]
  - Insomnia [Unknown]
